APPROVED DRUG PRODUCT: FERAHEME
Active Ingredient: FERUMOXYTOL
Strength: EQ 510MG IRON/17ML (EQ 30MG IRON/ML)
Dosage Form/Route: SOLUTION;INTRAVENOUS
Application: N022180 | Product #001 | TE Code: AB
Applicant: COVIS PHARMA GMBH
Approved: Jun 30, 2009 | RLD: Yes | RS: Yes | Type: RX